FAERS Safety Report 22258744 (Version 9)
Quarter: 2025Q1

REPORT INFORMATION
  Report Type: Report from Study
  Country: DE (occurrence: DE)
  Receive Date: 20230427
  Receipt Date: 20250205
  Transmission Date: 20250408
  Serious: Yes (Hospitalization, Other)
  Sender: ROCHE
  Company Number: DE-ROCHE-2552257

PATIENT
  Age: 29 Year
  Sex: Female

DRUGS (7)
  1. OCREVUS [Suspect]
     Active Substance: OCRELIZUMAB
     Indication: Relapsing-remitting multiple sclerosis
     Dosage: FREQUENCY WAS 188 DAYS, 182 DAYS, 169 DAYS
     Route: 040
     Dates: start: 20190806
  2. OCREVUS [Suspect]
     Active Substance: OCRELIZUMAB
     Route: 040
     Dates: start: 20190819
  3. OCREVUS [Suspect]
     Active Substance: OCRELIZUMAB
     Route: 040
     Dates: start: 20200213
  4. OCREVUS [Suspect]
     Active Substance: OCRELIZUMAB
     Route: 040
     Dates: start: 20200813
  5. METAMIZOLE [Concomitant]
     Active Substance: METAMIZOLE
  6. CANNABIDIOL [Concomitant]
     Active Substance: CANNABIDIOL
  7. BACLOFEN [Concomitant]
     Active Substance: BACLOFEN

REACTIONS (18)
  - Insomnia [Recovered/Resolved]
  - Restlessness [Recovered/Resolved]
  - Headache [Recovered/Resolved]
  - Sensory disturbance [Recovering/Resolving]
  - Gastrointestinal infection [Recovered/Resolved]
  - Urinary tract infection [Recovered/Resolved]
  - Pyelitis [Recovered/Resolved]
  - Oropharyngeal pain [Recovered/Resolved]
  - Ageusia [Recovered/Resolved]
  - Tachycardia [Recovered/Resolved]
  - Hypertension [Recovered/Resolved]
  - Drug ineffective [Unknown]
  - Nausea [Recovered/Resolved]
  - Paraesthesia [Recovered/Resolved]
  - Onychomycosis [Recovering/Resolving]
  - Multiple sclerosis [Recovering/Resolving]
  - Malignant melanoma [Not Recovered/Not Resolved]
  - Skin cancer [Not Recovered/Not Resolved]

NARRATIVE: CASE EVENT DATE: 20200213
